FAERS Safety Report 6348111-8 (Version None)
Quarter: 2009Q3

REPORT INFORMATION
  Report Type: 
  Country: None (occurrence: None)
  Receive Date: 20090910
  Receipt Date: 20090901
  Transmission Date: 20100115
  Serious: Yes (Other)
  Sender: FDA-Public Use
  Company Number: US-AMGEN-QUU359455

PATIENT
  Sex: Male

DRUGS (5)
  1. ENBREL [Suspect]
     Indication: PSORIASIS
     Route: 058
     Dates: start: 20030206
  2. ENBREL [Suspect]
     Indication: PSORIATIC ARTHROPATHY
  3. PROZAC [Concomitant]
  4. NEXIUM [Concomitant]
  5. XANAX [Concomitant]

REACTIONS (2)
  - ABDOMINAL PAIN LOWER [None]
  - METASTATIC CARCINOID TUMOUR [None]
